FAERS Safety Report 17037881 (Version 2)
Quarter: 2020Q1

REPORT INFORMATION
  Report Type: Report from Study
  Country: KR (occurrence: KR)
  Receive Date: 20191115
  Receipt Date: 20200122
  Transmission Date: 20200409
  Serious: Yes (Hospitalization)
  Sender: FDA-Public Use
  Company Number: KR-EISAI MEDICAL RESEARCH-EC-2019-065189

PATIENT
  Age: 54 Year
  Sex: Male
  Weight: 44.1 kg

DRUGS (19)
  1. LENVIMA [Suspect]
     Active Substance: LENVATINIB
     Indication: HEPATOCELLULAR CARCINOMA
     Route: 048
     Dates: start: 20191008, end: 20191110
  2. VIREAD TAB [Concomitant]
  3. SMECTA SUSP [Concomitant]
  4. POTASSIUM CHLORIDE 2 DAEHAN INJ [Concomitant]
  5. GODEX CAP [Concomitant]
  6. MEGESTROL ACETATE DAEWON SUSPENSION [Concomitant]
  7. LASIX TAB [Concomitant]
  8. K-CONTIN CONTINUS TAB [Concomitant]
  9. LENVIMA [Suspect]
     Active Substance: LENVATINIB
     Route: 048
     Dates: start: 20191114, end: 20191216
  10. GASTER D TAB [Concomitant]
  11. CEFOBACTAM INJ [Concomitant]
  12. HEPA-MERTZ INFUSION [Concomitant]
  13. IRCODON [Concomitant]
     Active Substance: OXYCODONE HYDROCHLORIDE
  14. LAMINA-G SOLN [Concomitant]
  15. LIVACT GRAN [Concomitant]
  16. BORYUNG MEIACT TAB [Concomitant]
  17. HANMI UREA CREAM [Concomitant]
  18. TAMIPOOL INJ [Concomitant]
  19. DEXAMETHASONE PHOSPHATE DISODIUM HUONS INJ [Concomitant]

REACTIONS (2)
  - Jaundice [Recovering/Resolving]
  - International normalised ratio increased [Recovered/Resolved]

NARRATIVE: CASE EVENT DATE: 20191111
